FAERS Safety Report 7212470-4 (Version None)
Quarter: 2011Q1

REPORT INFORMATION
  Report Type: 
  Country: None (occurrence: None)
  Receive Date: 20110106
  Receipt Date: 20101227
  Transmission Date: 20110831
  Serious: Yes (Hospitalization, Other)
  Sender: FDA-Public Use
  Company Number: JP-BAYER-200915282BYL

PATIENT
  Age: 66 Year
  Sex: Male

DRUGS (11)
  1. OMEPRAL [Concomitant]
     Indication: GASTRIC DISORDER
     Dosage: 10 MG, QD
     Route: 048
  2. NEXAVAR [Suspect]
     Indication: HEPATIC NEOPLASM MALIGNANT
     Dosage: 800 MG, QD
     Route: 048
     Dates: start: 20091209, end: 20091222
  3. NEXAVAR [Suspect]
     Dosage: 400 MG, QD
     Route: 048
     Dates: start: 20091223, end: 20100103
  4. ADALAT CC [Concomitant]
     Indication: HYPERTENSION
     Dosage: 20 MG, QD
     Route: 048
  5. MUCOSTA [Concomitant]
     Indication: ABDOMINAL PAIN
     Dosage: 300 MG, QD
     Route: 048
  6. URSO 250 [Concomitant]
     Indication: CHRONIC HEPATITIS
     Dosage: 300 MG, QD
     Route: 048
  7. ALDACTONE [Concomitant]
     Indication: ASCITES
     Dosage: 50 MG, QD
     Route: 048
     Dates: start: 20101226
  8. LOSARTAN POTASSIUM AND HYDROCHLOROTHIAZIDE [Concomitant]
     Indication: HYPERTENSION
     Dosage: 1 DF, QD
     Route: 048
  9. LASIX [Concomitant]
     Indication: ASCITES
     Dosage: 40 MG, QD
     Route: 048
     Dates: start: 20101226
  10. CEROCRAL [Concomitant]
     Indication: CEREBRAL INFARCTION
     Dosage: 60 MG, QD
     Route: 048
  11. SERMION [Concomitant]
     Indication: CEREBRAL INFARCTION
     Dosage: 15 MG, QD
     Route: 048

REACTIONS (2)
  - HEPATIC ENCEPHALOPATHY [None]
  - HEPATIC FUNCTION ABNORMAL [None]
